FAERS Safety Report 12959057 (Version 5)
Quarter: 2017Q1

REPORT INFORMATION
  Report Type: Spontaneous
  Country: DE (occurrence: DE)
  Receive Date: 20161121
  Receipt Date: 20170216
  Transmission Date: 20170428
  Serious: Yes (Other)
  Sender: FDA-Public Use
  Company Number: DE-JNJFOC-20161115336

PATIENT
  Age: 63 Year
  Sex: Female
  Weight: 68 kg

DRUGS (8)
  1. REGAINE FRAUEN [Suspect]
     Active Substance: MINOXIDIL
     Indication: ALOPECIA
     Dosage: FROM TIME TO TIME (DATES UNSPECIFIED), SHE REDUCED THE FREQUENCY OF DRUG USE TO ONCE DAILY
     Route: 061
  2. REGAINE FRAUEN [Suspect]
     Active Substance: MINOXIDIL
     Indication: ALOPECIA
     Dosage: RESTARTED THE THERAPY (DATE, DOSE AND FREQUENCY UNSPECIFIED)
     Route: 061
  3. REGAINE FRAUEN [Suspect]
     Active Substance: MINOXIDIL
     Indication: ALOPECIA
     Route: 061
     Dates: start: 2010
  4. BISOPROLOL [Concomitant]
     Active Substance: BISOPROLOL
     Indication: PRODUCT USED FOR UNKNOWN INDICATION
     Route: 065
     Dates: start: 2011
  5. REGAINE FRAUEN [Suspect]
     Active Substance: MINOXIDIL
     Indication: ALOPECIA
     Dosage: DISCONTINUED THE THERAPY FOR 6 WEEKS
     Route: 061
     Dates: start: 201006, end: 201512
  6. MARCUMAR [Concomitant]
     Active Substance: PHENPROCOUMON
     Indication: PRODUCT USED FOR UNKNOWN INDICATION
     Route: 065
  7. CANCOR [Concomitant]
     Indication: ATRIAL FIBRILLATION
     Route: 065
     Dates: start: 201504
  8. CANCOR [Concomitant]
     Indication: EXTRASYSTOLES
     Route: 065
     Dates: start: 201504

REACTIONS (6)
  - Atrial fibrillation [Recovered/Resolved]
  - High frequency ablation [Unknown]
  - Blood pressure increased [Unknown]
  - Drug ineffective [Unknown]
  - Inappropriate schedule of drug administration [Unknown]
  - Nightmare [Unknown]

NARRATIVE: CASE EVENT DATE: 201103
